FAERS Safety Report 6330696-9 (Version None)
Quarter: 2009Q3

REPORT INFORMATION
  Report Type: 
  Country: None (occurrence: None)
  Receive Date: 20090827
  Receipt Date: 20090818
  Transmission Date: 20100115
  Serious: Yes (Hospitalization, Other)
  Sender: FDA-Public Use
  Company Number: US-AMGEN-QUU360591

PATIENT
  Sex: Male

DRUGS (7)
  1. NEULASTA [Suspect]
     Indication: CHEMOTHERAPY
     Dates: start: 20090717
  2. PROTONIX [Concomitant]
  3. TEMAZEPAM [Concomitant]
  4. WARFARIN [Concomitant]
  5. CARBOPLATIN [Concomitant]
  6. TAXOL [Concomitant]
  7. UNSPECIFIED PAIN MEDICATION [Concomitant]

REACTIONS (3)
  - DYSPNOEA [None]
  - HEART RATE INCREASED [None]
  - RESPIRATORY FAILURE [None]
